FAERS Safety Report 18311026 (Version 7)
Quarter: 2020Q4

REPORT INFORMATION
  Report Type: Report from Study
  Country: US (occurrence: US)
  Receive Date: 20200924
  Receipt Date: 20201201
  Transmission Date: 20210113
  Serious: Yes (Life-Threatening, Hospitalization, Other)
  Sender: FDA-Public Use
  Company Number: US-BIOGEN-2020BI00926181

PATIENT
  Age: 46 Year
  Sex: Female

DRUGS (2)
  1. TYSABRI [Suspect]
     Active Substance: NATALIZUMAB
     Indication: MULTIPLE SCLEROSIS
     Route: 065
     Dates: start: 20191204, end: 20200717
  2. TYSABRI [Suspect]
     Active Substance: NATALIZUMAB
     Route: 065

REACTIONS (11)
  - Pain in extremity [Not Recovered/Not Resolved]
  - Hallucination [Recovered/Resolved]
  - Frustration tolerance decreased [Unknown]
  - Liver injury [Unknown]
  - Emotional distress [Unknown]
  - Gait inability [Unknown]
  - Antinuclear antibody increased [Not Recovered/Not Resolved]
  - Stress [Not Recovered/Not Resolved]
  - Hepatic failure [Recovered/Resolved]
  - Multiple sclerosis relapse [Unknown]
  - Hepatotoxicity [Unknown]

NARRATIVE: CASE EVENT DATE: 202007
